FAERS Safety Report 10103704 (Version 2)
Quarter: 2014Q3

REPORT INFORMATION
  Report Type: Other
  Country: US (occurrence: US)
  Receive Date: 20140424
  Receipt Date: 20140724
  Transmission Date: 20150326
  Serious: Yes (Hospitalization, Other)
  Sender: FDA-Public Use
  Company Number: US-GSKPPD-2014GSK001507

PATIENT
  Age: 56 Year
  Sex: Male
  Weight: 124.4 kg

DRUGS (8)
  1. ASPIRIN. [Concomitant]
     Active Substance: ASPIRIN
  2. AVANDIA [Suspect]
     Active Substance: ROSIGLITAZONE MALEATE
     Indication: DIABETES MELLITUS
     Dosage: BID
     Route: 048
     Dates: start: 200602
  3. LASIX [Concomitant]
     Active Substance: FUROSEMIDE
  4. LOTREL [Concomitant]
     Active Substance: AMLODIPINE BESYLATE\BENAZEPRIL HYDROCHLORIDE
  5. QUININE [Concomitant]
     Active Substance: QUININE
  6. AVANDAMET [Suspect]
     Active Substance: METFORMIN HYDROCHLORIDE\ROSIGLITAZONE MALEATE
     Indication: DIABETES MELLITUS
     Dosage: 4-1000 MG
     Dates: start: 20041112, end: 200411
  7. ATENOLOL. [Concomitant]
     Active Substance: ATENOLOL
  8. HYDRALAZINE [Concomitant]
     Active Substance: HYDRALAZINE HYDROCHLORIDE

REACTIONS (2)
  - Cardiac failure congestive [Recovered/Resolved]
  - Cerebrovascular accident [None]

NARRATIVE: CASE EVENT DATE: 20060501
